FAERS Safety Report 4960574-9 (Version None)
Quarter: 2006Q1

REPORT INFORMATION
  Report Type: 
  Country: None (occurrence: None)
  Receive Date: 20060331
  Receipt Date: 20060331
  Transmission Date: 20060701
  Serious: Yes (Hospitalization, Other)
  Sender: FDA-Public Use
  Company Number: None

PATIENT
  Age: 70 Year
  Sex: Female
  Weight: 48.9885 kg

DRUGS (5)
  1. ^EQUATE^ FIBER THERAPY-SMOOTH TEXTURE 100% NATURAL PSYLLIUMHUSK FIBRER [Suspect]
     Indication: NUTRITIONAL SUPPORT
     Dosage: ORANGE FLAVOR BULK FORMING LAX DIETARY FIBER SUPPLEMENT
     Dates: start: 20060305, end: 20060306
  2. PREVICID [Concomitant]
  3. PHAZIME [Concomitant]
  4. MYLANTA [Concomitant]
  5. TUMS [Concomitant]

REACTIONS (13)
  - ABDOMINAL DISTENSION [None]
  - ABDOMINAL PAIN UPPER [None]
  - ASTHENIA [None]
  - BACK PAIN [None]
  - CHEST PAIN [None]
  - CHILLS [None]
  - DYSPNOEA [None]
  - GASTROINTESTINAL DISORDER [None]
  - HEART RATE INCREASED [None]
  - HYPERHIDROSIS [None]
  - NAUSEA [None]
  - OESOPHAGEAL SPASM [None]
  - THROAT TIGHTNESS [None]
